FAERS Safety Report 9890348 (Version 2)
Quarter: 2014Q1

REPORT INFORMATION
  Report Type: Spontaneous
  Country: JP (occurrence: JP)
  Receive Date: 20140212
  Receipt Date: 20140320
  Transmission Date: 20141002
  Serious: Yes (Other)
  Sender: FDA-Public Use
  Company Number: JP-ROCHE-1347249

PATIENT
  Age: 60 Year
  Sex: 0

DRUGS (2)
  1. RITUXIMAB [Suspect]
     Indication: LYMPHOMA
     Route: 042
  2. RITUXIMAB [Suspect]
     Indication: COLD TYPE HAEMOLYTIC ANAEMIA
     Dosage: SECOND COURSE
     Route: 042
     Dates: start: 20140206

REACTIONS (1)
  - Organising pneumonia [Recovering/Resolving]
